FAERS Safety Report 18957124 (Version 3)
Quarter: 2021Q2

REPORT INFORMATION
  Report Type: Spontaneous
  Country: PL (occurrence: PL)
  Receive Date: 20210302
  Receipt Date: 20210422
  Transmission Date: 20210717
  Serious: Yes (Life-Threatening, Hospitalization, Other)
  Sender: FDA-Public Use
  Company Number: PL-SUN PHARMACEUTICAL INDUSTRIES LTD-2021R1-279235

PATIENT
  Age: 43 Year
  Sex: Male

DRUGS (7)
  1. PONATINIB [Concomitant]
     Active Substance: PONATINIB
     Indication: CHRONIC MYELOID LEUKAEMIA
     Dosage: 15 MILLIGRAM
     Route: 065
  2. IMATINIB. [Suspect]
     Active Substance: IMATINIB MESYLATE
     Indication: PRODUCT USED FOR UNKNOWN INDICATION
     Dosage: 400 MILLIGRAM, DAILY
     Route: 065
  3. DASATINIB. [Suspect]
     Active Substance: DASATINIB
     Dosage: 50 MILLIGRAM, DAILY
     Route: 048
     Dates: start: 2014, end: 2016
  4. PREDNISONE. [Concomitant]
     Active Substance: PREDNISONE
     Indication: CHRONIC MYELOID LEUKAEMIA
     Route: 065
  5. PONATINIB [Concomitant]
     Active Substance: PONATINIB
     Indication: CHRONIC MYELOID LEUKAEMIA
     Dosage: 45 MG
     Route: 065
     Dates: start: 201705
  6. DASATINIB. [Suspect]
     Active Substance: DASATINIB
     Indication: CHRONIC MYELOID LEUKAEMIA
     Dosage: 100 MILLIGRAM, DAILY
     Route: 048
  7. PREDNISONE. [Concomitant]
     Active Substance: PREDNISONE
     Indication: CHRONIC MYELOID LEUKAEMIA
     Dosage: 20 MILLIGRAM
     Route: 065

REACTIONS (13)
  - Toxicity to various agents [Unknown]
  - Pleural effusion [Unknown]
  - Treatment failure [Unknown]
  - Thrombocytopenia [Unknown]
  - Lung opacity [Unknown]
  - Pleural effusion [Recovering/Resolving]
  - Sepsis [Unknown]
  - Pneumonia [Recovering/Resolving]
  - Bacterial sepsis [Recovering/Resolving]
  - Drug resistance [Unknown]
  - Loss of therapeutic response [Recovered/Resolved]
  - Thrombocytopenia [Recovering/Resolving]
  - Pulmonary tuberculosis [Recovering/Resolving]

NARRATIVE: CASE EVENT DATE: 201408
